FAERS Safety Report 22960508 (Version 4)
Quarter: 2023Q4

REPORT INFORMATION
  Report Type: Spontaneous
  Country: US (occurrence: US)
  Receive Date: 20230920
  Receipt Date: 20231215
  Transmission Date: 20240109
  Serious: No
  Sender: FDA-Public Use
  Company Number: US-002147023-NVSC2023US202386

PATIENT
  Age: 52 Year
  Sex: Female

DRUGS (6)
  1. CLOFAZIMINE [Suspect]
     Active Substance: CLOFAZIMINE
     Indication: Atypical mycobacterial infection
     Dosage: 50 MG, BID
     Route: 048
     Dates: start: 20210414
  2. CLOFAZIMINE [Suspect]
     Active Substance: CLOFAZIMINE
     Dosage: 100 MG, BID
     Route: 048
     Dates: start: 20210414
  3. RIFAMPIN [Concomitant]
     Active Substance: RIFAMPIN
     Indication: Product used for unknown indication
     Dosage: 300 MG, Q3W
     Route: 065
  4. AMIKACIN [Concomitant]
     Active Substance: AMIKACIN
     Indication: Product used for unknown indication
     Dosage: 590 MG, Q3W
     Route: 065
     Dates: end: 20230907
  5. AZITHROMYCIN [Concomitant]
     Active Substance: AZITHROMYCIN
     Indication: Product used for unknown indication
     Dosage: 500 MG, Q3W
     Route: 065
  6. ETHAMBUTOL [Concomitant]
     Active Substance: ETHAMBUTOL HYDROCHLORIDE
     Indication: Product used for unknown indication
     Dosage: 1200 MG, Q3W
     Route: 065

REACTIONS (1)
  - Dry mouth [Not Recovered/Not Resolved]

NARRATIVE: CASE EVENT DATE: 20210601
